FAERS Safety Report 16470210 (Version 1)
Quarter: 2019Q2

REPORT INFORMATION
  Report Type: Spontaneous
  Country: US (occurrence: US)
  Receive Date: 20190514
  Receipt Date: 20190514
  Transmission Date: 20190711
  Serious: No
  Sender: FDA-Public Use
  Company Number: None

PATIENT
  Age: 78 Year
  Sex: Female
  Weight: 65.77 kg

DRUGS (2)
  1. IBRANCE [Suspect]
     Active Substance: PALBOCICLIB
     Indication: BREAST CANCER FEMALE
     Dosage: ?          OTHER FREQUENCY:QD FOR 21 DAYS OF ;?
     Route: 048
     Dates: start: 20180913
  2. ANASTRAZOLE 1MG [Suspect]
     Active Substance: ANASTROZOLE

REACTIONS (2)
  - Lethargy [None]
  - Fatigue [None]

NARRATIVE: CASE EVENT DATE: 20190513
